FAERS Safety Report 8790755 (Version 1)
Quarter: 2012Q4

REPORT INFORMATION
  Report Type: Spontaneous
  Country: US (occurrence: None)
  Receive Date: 20120913
  Receipt Date: 20120913
  Transmission Date: 20130627
  Serious: Yes (Death)
  Sender: FDA-Public Use
  Company Number: None

PATIENT
  Age: 62 Year
  Sex: Female
  Weight: 83.51 kg

DRUGS (19)
  1. ALLOPURINOL [Suspect]
     Indication: GOUT
     Dosage: For years. ?stopped + restarted
     Route: 048
  2. LORTAB [Concomitant]
  3. INDOCIN [Concomitant]
  4. NIASPAN [Concomitant]
  5. SPIRINOLACTONE [Concomitant]
  6. AMLODOPINE [Concomitant]
  7. ASA [Concomitant]
  8. LORATADINE [Concomitant]
  9. GLYBURIDE [Concomitant]
  10. OMEPRAZOLE [Concomitant]
  11. LEVEMIR [Concomitant]
  12. MELOXICAM [Concomitant]
  13. PRANDIN [Concomitant]
  14. COREG [Concomitant]
  15. LISINOPRIL [Concomitant]
  16. DIGOXIN [Concomitant]
  17. SIMVASTATIN [Concomitant]
  18. CEPHALEXIN [Concomitant]
  19. MAALOX [Concomitant]

REACTIONS (4)
  - Confusional state [None]
  - Rash [None]
  - Acute hepatic failure [None]
  - Coagulopathy [None]
